FAERS Safety Report 13339119 (Version 3)
Quarter: 2017Q2

REPORT INFORMATION
  Report Type: Spontaneous
  Country: US (occurrence: US)
  Receive Date: 20170315
  Receipt Date: 20170530
  Transmission Date: 20170830
  Serious: Yes (Other)
  Sender: FDA-Public Use
  Company Number: US-REGENERON PHARMACEUTICALS, INC.-2017-13045

PATIENT

DRUGS (6)
  1. EYLEA [Suspect]
     Active Substance: AFLIBERCEPT
     Indication: NEOVASCULAR AGE-RELATED MACULAR DEGENERATION
     Dosage: RIGHT EYE, DRUG DISCONTINUED
     Route: 031
     Dates: start: 201506, end: 201506
  2. EYLEA [Suspect]
     Active Substance: AFLIBERCEPT
     Dosage: LEFT EYE EVERY 3 MONTHS
     Route: 031
     Dates: start: 20160823, end: 20160823
  3. EYLEA [Suspect]
     Active Substance: AFLIBERCEPT
     Indication: MACULAR DEGENERATION
     Dosage: BOTH EYES
     Route: 031
  4. EYLEA [Suspect]
     Active Substance: AFLIBERCEPT
     Dosage: LEFT EYE EVERY 3 MONTHS
     Route: 031
     Dates: start: 20161118, end: 20161118
  5. EYLEA [Suspect]
     Active Substance: AFLIBERCEPT
     Dosage: LEFT EYE EVERY 3 MONTHS
     Route: 031
     Dates: start: 20170307, end: 20170307
  6. EYLEA [Suspect]
     Active Substance: AFLIBERCEPT
     Indication: MACULAR SCAR
     Dosage: LEFT EYE, EVERY 6 WEEKS TO EVERY 8 WEEKS, LAST DOSE
     Route: 031
     Dates: start: 201701, end: 201701

REACTIONS (2)
  - Macular degeneration [Unknown]
  - Visual impairment [Unknown]
